FAERS Safety Report 15430243 (Version 1)
Quarter: 2018Q4

REPORT INFORMATION
  Report Type: Spontaneous
  Country: US (occurrence: US)
  Receive Date: 20180926
  Receipt Date: 20180926
  Transmission Date: 20190204
  Serious: No
  Sender: FDA-Public Use
  Company Number: US-ASSERTIO THERAPEUTICS, INC.-US-2018DEP000173

PATIENT

DRUGS (2)
  1. GRALISE [Suspect]
     Active Substance: GABAPENTIN
     Indication: NEURALGIA
     Dosage: 1800 MG, QD
     Route: 048
     Dates: start: 20171221
  2. GRALISE [Suspect]
     Active Substance: GABAPENTIN
     Indication: NEURITIS
     Dosage: ONE TO TWO TABLETS, QD
     Dates: start: 201801

REACTIONS (4)
  - Nausea [Unknown]
  - Drug ineffective for unapproved indication [Unknown]
  - Dizziness [Unknown]
  - Neuralgia [Unknown]

NARRATIVE: CASE EVENT DATE: 201801
